FAERS Safety Report 8332817-5 (Version None)
Quarter: 2012Q1

REPORT INFORMATION
  Report Type: 
  Country: None (occurrence: None)
  Receive Date: 20120327
  Receipt Date: 20100621
  Transmission Date: 20120608
  Serious: Yes (Death, Hospitalization)
  Sender: FDA-Public Use
  Company Number: PHEH2010US02466

PATIENT
  Age: 66 Year
  Sex: Female
  Weight: 59.1 kg

DRUGS (9)
  1. LORAZEPAM [Concomitant]
  2. PLAVIX [Concomitant]
  3. DETROL [Concomitant]
  4. ASPRO (ACETYLSALICYLATE SODIUM) [Concomitant]
  5. ANTIARRHYTHMICS, CLASS I AND III (NO INGREDIENTS/SUBSTANCES) [Concomitant]
  6. ANTIDEPRESSANTS (NO INGREDIENTS/SUBSTANCES) [Concomitant]
  7. ANTIHISTAMINES (NO INGREDIENTS/SUBSTANCES) [Concomitant]
  8. GLEEVEC [Suspect]
     Indication: CHRONIC MYELOID LEUKAEMIA
     Dosage: 200 MG, DAILY, ORAL
     Route: 048
     Dates: start: 20090521, end: 20090901
  9. SIMVASTATIN [Concomitant]

REACTIONS (14)
  - VOMITING [None]
  - PYREXIA [None]
  - CHRONIC MYELOID LEUKAEMIA [None]
  - RESPIRATORY FAILURE [None]
  - MYOCARDIAL INFARCTION [None]
  - ASTHENIA [None]
  - URINARY TRACT INFECTION [None]
  - DYSPNOEA [None]
  - PULMONARY HYPERTENSION [None]
  - ABDOMINAL PAIN [None]
  - NAUSEA [None]
  - HYPOXIA [None]
  - RASH [None]
  - ENDOTRACHEAL INTUBATION [None]
